FAERS Safety Report 17997328 (Version 1)
Quarter: 2020Q3

REPORT INFORMATION
  Report Type: Spontaneous
  Country: FR (occurrence: FR)
  Receive Date: 20200709
  Receipt Date: 20200709
  Transmission Date: 20201103
  Serious: Yes (Hospitalization)
  Sender: FDA-Public Use
  Company Number: FR-SUN PHARMACEUTICAL INDUSTRIES LTD-2020RR-253096

PATIENT
  Age: 70 Year
  Sex: Male

DRUGS (3)
  1. CARTREX [Suspect]
     Active Substance: ACECLOFENAC
     Indication: PAIN
     Dosage: 200 MILLIGRAM, DAILY
     Route: 048
     Dates: start: 201801, end: 20190129
  2. ATORVASTATIN [Suspect]
     Active Substance: ATORVASTATIN
     Indication: DYSLIPIDAEMIA
     Dosage: 20 MILLIGRAM, DAILY
     Route: 048
  3. LYRICA [Suspect]
     Active Substance: PREGABALIN
     Indication: PAIN
     Dosage: 200 MILLIGRAM, DAILY
     Route: 048
     Dates: end: 20190129

REACTIONS (1)
  - Pancreatitis acute [Recovered/Resolved]

NARRATIVE: CASE EVENT DATE: 20190126
